FAERS Safety Report 6988648-1 (Version None)
Quarter: 2010Q3

REPORT INFORMATION
  Report Type: 
  Country: None (occurrence: None)
  Receive Date: 20100914
  Receipt Date: 20100901
  Transmission Date: 20110219
  Serious: Yes (Life-Threatening, Hospitalization)
  Sender: FDA-Public Use
  Company Number: 2010EN000163

PATIENT
  Age: 68 Year
  Sex: Female

DRUGS (1)
  1. ABELCET [Suspect]
     Indication: CANDIDIASIS
     Dosage: 15 MG; X1; IV
     Route: 042
     Dates: start: 20100430, end: 20100430

REACTIONS (2)
  - ECCHYMOSIS [None]
  - HYPERTENSIVE CRISIS [None]
